FAERS Safety Report 23533451 (Version 3)
Quarter: 2024Q3

REPORT INFORMATION
  Report Type: Report from Study
  Country: ES (occurrence: ES)
  Receive Date: 20240216
  Receipt Date: 20240904
  Transmission Date: 20241017
  Serious: Yes (Death, Other)
  Sender: JOHNSON AND JOHNSON
  Company Number: ES-JNJFOC-20240230723

PATIENT

DRUGS (4)
  1. DARATUMUMAB [Suspect]
     Active Substance: DARATUMUMAB
     Indication: Plasma cell myeloma refractory
     Route: 065
  2. VELCADE [Suspect]
     Active Substance: BORTEZOMIB
     Indication: Plasma cell myeloma refractory
     Route: 065
  3. BELANTAMAB MAFODOTIN [Suspect]
     Active Substance: BELANTAMAB MAFODOTIN
     Indication: Plasma cell myeloma refractory
     Route: 065
  4. DEXAMETHASONE [Suspect]
     Active Substance: DEXAMETHASONE
     Indication: Plasma cell myeloma refractory
     Route: 065

REACTIONS (27)
  - Adverse event [Fatal]
  - Neuropathy peripheral [Unknown]
  - Cataract [Unknown]
  - Vision blurred [Unknown]
  - Eye pain [Unknown]
  - Alanine aminotransferase increased [Unknown]
  - Injection site foreign body sensation in eye [Unknown]
  - Gamma-glutamyltransferase increased [Unknown]
  - Insomnia [Unknown]
  - COVID-19 [Unknown]
  - Pneumonia [Unknown]
  - Thrombocytopenia [Unknown]
  - Anaemia [Unknown]
  - Infection [Unknown]
  - Diarrhoea [Unknown]
  - Peripheral sensory neuropathy [Unknown]
  - Constipation [Unknown]
  - Fatigue [Unknown]
  - Pyrexia [Unknown]
  - Back pain [Unknown]
  - Infusion related reaction [Unknown]
  - Dry eye [Unknown]
  - Photophobia [Unknown]
  - Eye irritation [Unknown]
  - Aspartate aminotransferase increased [Unknown]
  - Upper respiratory tract infection [Unknown]
  - Nausea [Unknown]
